FAERS Safety Report 19270112 (Version 1)
Quarter: 2021Q2

REPORT INFORMATION
  Report Type: Spontaneous
  Country: US (occurrence: US)
  Receive Date: 20210518
  Receipt Date: 20210518
  Transmission Date: 20210717
  Serious: No
  Sender: FDA-Public Use
  Company Number: US-PFIZER INC-2021228640

PATIENT
  Age: 29 Year
  Sex: Female

DRUGS (2)
  1. EUCRISA [Suspect]
     Active Substance: CRISABOROLE
     Indication: DERMATITIS ATOPIC
     Dosage: UNK (1?2 TIMES DAILY)
  2. EUCRISA [Suspect]
     Active Substance: CRISABOROLE
     Indication: NEURODERMATITIS

REACTIONS (1)
  - Drug ineffective [Unknown]
